FAERS Safety Report 13174398 (Version 5)
Quarter: 2017Q4

REPORT INFORMATION
  Report Type: Report from Study
  Country: US (occurrence: US)
  Receive Date: 20170201
  Receipt Date: 20171101
  Transmission Date: 20180320
  Serious: Yes (Hospitalization)
  Sender: FDA-Public Use
  Company Number: US-BAYER-2016-052159

PATIENT
  Age: 56 Year
  Sex: Male

DRUGS (6)
  1. NEXAVAR [Suspect]
     Active Substance: SORAFENIB
     Indication: HEPATOCELLULAR CARCINOMA
     Dosage: 200 MG, BID
     Route: 048
     Dates: start: 20160307
  2. NEXAVAR [Suspect]
     Active Substance: SORAFENIB
     Indication: HEPATOCELLULAR CARCINOMA
     Dosage: 200 MG, BID
     Route: 048
  3. NEXAVAR [Suspect]
     Active Substance: SORAFENIB
     Indication: HEPATIC CIRRHOSIS
     Dosage: 400 MG, BID
     Route: 048
     Dates: end: 20160518
  4. NEXAVAR [Suspect]
     Active Substance: SORAFENIB
     Indication: HEPATOCELLULAR CARCINOMA
     Dosage: 400 MG, QD
     Dates: start: 2016
  5. NEXAVAR [Suspect]
     Active Substance: SORAFENIB
     Indication: HEPATOCELLULAR CARCINOMA
     Dosage: 200 MG, QD
  6. INSULIN [Concomitant]
     Active Substance: INSULIN NOS

REACTIONS (15)
  - Pain [Not Recovered/Not Resolved]
  - Pain in extremity [Not Recovered/Not Resolved]
  - Hospitalisation [None]
  - Diarrhoea [Not Recovered/Not Resolved]
  - Skin fissures [None]
  - Dry skin [None]
  - Epistaxis [Not Recovered/Not Resolved]
  - Blister [Not Recovered/Not Resolved]
  - Skin lesion [None]
  - Pain of skin [None]
  - Fatigue [None]
  - Drug dose omission [None]
  - Alopecia [None]
  - Pain in extremity [None]
  - Hyperkeratosis [None]

NARRATIVE: CASE EVENT DATE: 20160315
